FAERS Safety Report 4667193-2 (Version None)
Quarter: 2005Q2

REPORT INFORMATION
  Report Type: 
  Country: None (occurrence: None)
  Receive Date: 20050520
  Receipt Date: 20040806
  Transmission Date: 20051028
  Serious: Yes (Disabling, Other)
  Sender: FDA-Public Use
  Company Number: PHEH2004US08631

PATIENT
  Age: 66 Year
  Sex: Female
  Weight: 67 kg

DRUGS (5)
  1. TAMOXIFEN [Concomitant]
  2. OXYCONTIN [Concomitant]
  3. VICODIN [Concomitant]
  4. ASPIRIN [Concomitant]
  5. ZOMETA [Suspect]
     Indication: METASTASES TO BONE
     Dosage: 4 MG, QMO
     Route: 042
     Dates: start: 20011031, end: 20040803

REACTIONS (5)
  - JAW DISORDER [None]
  - OSTEONECROSIS [None]
  - PAIN IN JAW [None]
  - TOOTH DISORDER [None]
  - TOOTHACHE [None]
